FAERS Safety Report 7465108-5 (Version None)
Quarter: 2011Q2

REPORT INFORMATION
  Report Type: 
  Country: None (occurrence: None)
  Receive Date: 20110509
  Receipt Date: 20110426
  Transmission Date: 20111010
  Serious: Yes (Other)
  Sender: FDA-Public Use
  Company Number: FR-JNJFOC-20110500701

PATIENT

DRUGS (8)
  1. LORAZEPAM [Concomitant]
     Indication: RESTLESSNESS
  2. HALOPERIDOL [Suspect]
     Indication: BIPOLAR I DISORDER
     Route: 065
  3. LORAZEPAM [Concomitant]
     Indication: AGITATION
  4. LORAZEPAM [Concomitant]
     Indication: INSOMNIA
  5. VALPROATE SODIUM [Suspect]
     Indication: BIPOLAR I DISORDER
     Route: 065
  6. LORAZEPAM [Concomitant]
     Indication: HOSTILITY
  7. LORAZEPAM [Concomitant]
     Indication: IRRITABILITY
  8. ANTIPARKINSON DRUG [Concomitant]
     Indication: EXTRAPYRAMIDAL DISORDER

REACTIONS (1)
  - WEIGHT DECREASED [None]
